FAERS Safety Report 20020890 (Version 2)
Quarter: 2023Q2

REPORT INFORMATION
  Report Type: Spontaneous
  Country: US (occurrence: US)
  Receive Date: 20211101
  Receipt Date: 20230602
  Transmission Date: 20230721
  Serious: No
  Sender: FDA-Public Use
  Company Number: US-VERTEX PHARMACEUTICALS-2021-016706

PATIENT
  Age: 8 Year

DRUGS (3)
  1. TRIKAFTA [Suspect]
     Active Substance: ELEXACAFTOR\IVACAFTOR\TEZACAFTOR
     Indication: Cystic fibrosis
     Dosage: PEDIATRIC DOSE
     Route: 048
     Dates: start: 20210814, end: 202111
  2. TRIKAFTA [Suspect]
     Active Substance: ELEXACAFTOR\IVACAFTOR\TEZACAFTOR
     Dosage: 2 ORANGE TABS ON DAY 1, 1 ORANGE TAB ON DAY 2 AND ALTERNATE (NO BLUE TABS)
     Route: 048
     Dates: start: 20211110, end: 202112
  3. TRIKAFTA [Suspect]
     Active Substance: ELEXACAFTOR\IVACAFTOR\TEZACAFTOR
     Dosage: NORMAL DOSE
     Route: 048
     Dates: start: 20211207

REACTIONS (5)
  - Headache [Unknown]
  - Blood bilirubin increased [Recovered/Resolved]
  - Bilirubin conjugated increased [Recovered/Resolved]
  - Papilloedema [Not Recovered/Not Resolved]
  - Vomiting [Unknown]

NARRATIVE: CASE EVENT DATE: 20210901
